FAERS Safety Report 8594068-9 (Version None)
Quarter: 2012Q3

REPORT INFORMATION
  Report Type: 
  Country: None (occurrence: None)
  Receive Date: 20120814
  Receipt Date: 20120813
  Transmission Date: 20120928
  Serious: Yes (Death)
  Sender: FDA-Public Use
  Company Number: DE-ROCHE-1101573

PATIENT
  Sex: Male
  Weight: 84 kg

DRUGS (1)
  1. MABTHERA [Suspect]
     Indication: CHRONIC LYMPHOCYTIC LEUKAEMIA
     Route: 042
     Dates: start: 20100608, end: 20101011

REACTIONS (1)
  - ACUTE MYOCARDIAL INFARCTION [None]
